FAERS Safety Report 26085562 (Version 1)
Quarter: 2025Q4

REPORT INFORMATION
  Report Type: Other
  Country: CA (occurrence: CA)
  Receive Date: 20251125
  Receipt Date: 20251125
  Transmission Date: 20260118
  Serious: Yes (Other)
  Sender: INTERCEPT PHARMACEUTICALS
  Company Number: CA-INTERCEPT-PM2020000693

PATIENT
  Age: 45 Year
  Sex: Female

DRUGS (6)
  1. OCALIVA [Suspect]
     Active Substance: OBETICHOLIC ACID
     Indication: Primary biliary cholangitis
     Dosage: 5 MG, QD
     Dates: start: 20180508
  2. OCALIVA [Suspect]
     Active Substance: OBETICHOLIC ACID
     Dosage: 10 MG, QD
     Dates: end: 202009
  3. OCALIVA [Suspect]
     Active Substance: OBETICHOLIC ACID
     Dosage: 10 MG, QD
     Dates: start: 2021
  4. OCALIVA [Suspect]
     Active Substance: OBETICHOLIC ACID
     Dosage: 5 MG, QD (RESTARTED)
  5. URSODIOL [Concomitant]
     Active Substance: URSODIOL
     Indication: Product used for unknown indication
     Dosage: 500 MG, BID
  6. URSODIOL [Concomitant]
     Active Substance: URSODIOL
     Dosage: 500 MG, BID

REACTIONS (10)
  - Hepatic function abnormal [Not Recovered/Not Resolved]
  - Hepatic fibrosis [Not Recovered/Not Resolved]
  - Bilirubin conjugated abnormal [Recovered/Resolved]
  - Anaemia [Unknown]
  - Pain [Unknown]
  - Nausea [Unknown]
  - Hernia [Unknown]
  - Gamma-glutamyltransferase abnormal [Unknown]
  - Blood alkaline phosphatase increased [Recovering/Resolving]
  - Therapy interrupted [Recovered/Resolved]

NARRATIVE: CASE EVENT DATE: 20200501
